FAERS Safety Report 12845245 (Version 4)
Quarter: 2017Q2

REPORT INFORMATION
  Report Type: Report from Study
  Country: CA (occurrence: CA)
  Receive Date: 20161013
  Receipt Date: 20170609
  Transmission Date: 20170830
  Serious: Yes (Hospitalization, Other)
  Sender: FDA-Public Use
  Company Number: CA-TAKEDA-2016TUS013310

PATIENT
  Age: 53 Year
  Sex: Male

DRUGS (2)
  1. PROFERRIN [Concomitant]
     Dosage: UNK
  2. VEDOLIZUMAB [Suspect]
     Active Substance: VEDOLIZUMAB
     Indication: CROHN^S DISEASE
     Dosage: 300 MG, UNK
     Route: 042
     Dates: start: 20160505

REACTIONS (2)
  - Intestinal obstruction [Unknown]
  - Gastrointestinal surgery [Unknown]

NARRATIVE: CASE EVENT DATE: 20160816
